FAERS Safety Report 5975704-X (Version None)
Quarter: 2008Q4

REPORT INFORMATION
  Report Type: 
  Country: None (occurrence: None)
  Receive Date: 20081202
  Receipt Date: 20081126
  Transmission Date: 20090506
  Serious: Yes (Life-Threatening, Hospitalization)
  Sender: FDA-Public Use
  Company Number: PHHY2008TR29795

PATIENT
  Sex: Female
  Weight: 38 kg

DRUGS (4)
  1. CERTICAN [Suspect]
     Indication: IMMUNOSUPPRESSION
     Dosage: 1 MG, BID
     Route: 048
     Dates: start: 20071010
  2. MYFORTIC [Suspect]
     Dosage: UNK
     Route: 048
     Dates: start: 20041124
  3. ENALAPRIL MALEATE [Concomitant]
     Indication: HYPERTENSION
     Dosage: UNK
     Route: 048
     Dates: start: 20010411
  4. PREDNISOLONE [Concomitant]
     Dosage: 10 MG/DAY
     Route: 048

REACTIONS (3)
  - DEAFNESS BILATERAL [None]
  - HAEMOGLOBIN DECREASED [None]
  - PANCREATITIS ACUTE [None]
